FAERS Safety Report 18380812 (Version 1)
Quarter: 2020Q4

REPORT INFORMATION
  Report Type: Spontaneous
  Country: US (occurrence: US)
  Receive Date: 20201014
  Receipt Date: 20201014
  Transmission Date: 20210114
  Serious: Yes (Other)
  Sender: FDA-Public Use
  Company Number: US-SA-2020SA277900

PATIENT

DRUGS (1)
  1. GOLD BOND ULTIMATE AGE DEFENSE HAND CREAM WITH SPF 20 [Suspect]
     Active Substance: AVOBENZONE\OCTISALATE\OCTOCRYLENE
     Route: 061

REACTIONS (2)
  - Thermal burns of eye [Unknown]
  - Accidental exposure to product [Unknown]
